FAERS Safety Report 9935414 (Version 2)
Quarter: 2014Q2

REPORT INFORMATION
  Report Type: Spontaneous
  Country: US (occurrence: US)
  Receive Date: 20140228
  Receipt Date: 20140521
  Transmission Date: 20141212
  Serious: No
  Sender: FDA-Public Use
  Company Number: US-PFIZER INC-2014057616

PATIENT
  Age: 66 Year
  Sex: Male
  Weight: 64.85 kg

DRUGS (12)
  1. LYRICA [Suspect]
     Indication: DIABETIC NEUROPATHY
     Dosage: 75 MG, 2X/DAY
  2. LISINOPRIL [Concomitant]
     Indication: HYPERTENSION
     Dosage: 5 MG, 1X/DAY AT BED TIME
     Route: 048
  3. SINEMET [Concomitant]
     Indication: PARKINSON^S DISEASE
     Dosage: CARBIDOPA (50MG)/ LEVODOPA (200 MG), 3X/DAY
     Route: 048
  4. SERTRALINE [Concomitant]
     Dosage: 50 MG, DAILY
     Route: 048
  5. AMITRIPTYLINE [Concomitant]
     Dosage: 50 MG, DAILY
  6. EFFIENT [Concomitant]
     Indication: CARDIAC DISORDER
     Dosage: 10 MG, DAILY
  7. SIMVASTATIN [Concomitant]
     Indication: BLOOD CHOLESTEROL INCREASED
     Dosage: 40 MG, DAILY
  8. FUROSEMIDE [Concomitant]
     Indication: HYPERTENSION
     Dosage: 20 MG, DAILY
  9. METOPROLOL [Concomitant]
     Indication: HYPERTENSION
     Dosage: 25 MG, DAILY
  10. NEXIUM [Concomitant]
     Dosage: 40 MG, DAILY
  11. LEVEMIR [Concomitant]
     Indication: DIABETES MELLITUS
     Dosage: 75 MG, DAILY
  12. NOVOLOG [Concomitant]
     Indication: DIABETES MELLITUS
     Dosage: UNK

REACTIONS (2)
  - Pain in extremity [Unknown]
  - Back pain [Unknown]
